FAERS Safety Report 9083564 (Version 1)
Quarter: 2013Q1

REPORT INFORMATION
  Report Type: Report from Study
  Country: US (occurrence: US)
  Receive Date: 20130131
  Receipt Date: 20130131
  Transmission Date: 20140127
  Serious: No
  Sender: FDA-Public Use
  Company Number: US-ABBOTT-12P-163-0989894-00

PATIENT
  Age: 51 Year
  Sex: Female

DRUGS (5)
  1. HUMIRA [Suspect]
     Indication: RHEUMATOID ARTHRITIS
     Dates: start: 20120827
  2. EFFEXOR [Concomitant]
     Indication: DEPRESSION
  3. AMBIEN [Concomitant]
     Indication: INSOMNIA
     Dosage: AT NIGHT AS NEEDED
  4. UNKNOWN ANTI ACID [Concomitant]
     Indication: GASTROOESOPHAGEAL REFLUX DISEASE
  5. MOBIC [Concomitant]
     Indication: ARTHRALGIA

REACTIONS (2)
  - Injection site pain [Recovered/Resolved]
  - Arthralgia [Not Recovered/Not Resolved]
